FAERS Safety Report 4743728-6 (Version None)
Quarter: 2005Q3

REPORT INFORMATION
  Report Type: 
  Country: None (occurrence: None)
  Receive Date: 20050812
  Receipt Date: 20050810
  Transmission Date: 20060218
  Serious: Yes (Hospitalization, Other)
  Sender: FDA-Public Use
  Company Number: US-GLAXOSMITHKLINE-A0569714A

PATIENT
  Age: 40 Year
  Sex: Female

DRUGS (4)
  1. SEREVENT [Suspect]
     Indication: ASTHMA
     Dosage: 2 PER DAY
     Route: 055
  2. NITROGLYCERIN [Concomitant]
  3. INSULIN [Concomitant]
  4. ACTOS [Concomitant]

REACTIONS (2)
  - CORONARY ARTERY OCCLUSION [None]
  - STENT PLACEMENT [None]
